FAERS Safety Report 20623353 (Version 1)
Quarter: 2022Q1

REPORT INFORMATION
  Report Type: Spontaneous
  Country: GB (occurrence: GB)
  Receive Date: 20220322
  Receipt Date: 20220322
  Transmission Date: 20220423
  Serious: Yes (Disabling, Other)
  Sender: FDA-Public Use
  Company Number: GB-MHRA-MED-202203111344193720-4KROH

PATIENT
  Age: 47 Year
  Sex: Male
  Weight: 114 kg

DRUGS (1)
  1. ARIPIPRAZOLE [Suspect]
     Active Substance: ARIPIPRAZOLE
     Route: 065
     Dates: start: 20201001, end: 20210301

REACTIONS (18)
  - Medication error [Unknown]
  - Central obesity [Not Recovered/Not Resolved]
  - Fatigue [Not Recovered/Not Resolved]
  - Gastrointestinal pain [Recovering/Resolving]
  - Blood pressure measurement [Recovering/Resolving]
  - Cardiac flutter [Not Recovered/Not Resolved]
  - Tardive dyskinesia [Not Recovered/Not Resolved]
  - Amnesia [Not Recovered/Not Resolved]
  - Blood cholesterol increased [Unknown]
  - Muscle spasms [Not Recovered/Not Resolved]
  - Muscular weakness [Not Recovered/Not Resolved]
  - Dysuria [Recovering/Resolving]
  - Joint swelling [Recovering/Resolving]
  - Cluster headache [Not Recovered/Not Resolved]
  - Petit mal epilepsy [Recovering/Resolving]
  - Vision blurred [Not Recovered/Not Resolved]
  - Vertigo [Not Recovered/Not Resolved]
  - Vomiting [Not Recovered/Not Resolved]

NARRATIVE: CASE EVENT DATE: 20201001
